FAERS Safety Report 11772684 (Version 1)
Quarter: 2015Q4

REPORT INFORMATION
  Report Type: Spontaneous
  Country: US (occurrence: None)
  Receive Date: 20151124
  Receipt Date: 20151124
  Transmission Date: 20160304
  Serious: Yes (Other)
  Sender: FDA-Public Use
  Company Number: None

PATIENT
  Age: 27 Year
  Sex: Female
  Weight: 67.13 kg

DRUGS (3)
  1. METRONIDAZOLE. [Concomitant]
     Active Substance: METRONIDAZOLE
  2. MISOPROSTOL. [Concomitant]
     Active Substance: MISOPROSTOL
  3. MIFEPREX [Suspect]
     Active Substance: MIFEPRISTONE
     Indication: ABORTION INDUCED
     Dosage: 3 PILLS
     Route: 048
     Dates: start: 20151017, end: 20151017

REACTIONS (2)
  - Drug ineffective [None]
  - Induced abortion failed [None]

NARRATIVE: CASE EVENT DATE: 20151026
